FAERS Safety Report 4426669-3 (Version None)
Quarter: 2004Q3

REPORT INFORMATION
  Report Type: 
  Country: None (occurrence: None)
  Receive Date: 20040811
  Receipt Date: 20040729
  Transmission Date: 20050211
  Serious: Yes (Other)
  Sender: FDA-Public Use
  Company Number: 2004051426

PATIENT

DRUGS (6)
  1. NEURONTIN [Suspect]
     Indication: ILL-DEFINED DISORDER
  2. LAMOTRIGINE [Suspect]
     Indication: ILL-DEFINED DISORDER
  3. ALPRAZOLAM [Suspect]
     Indication: ILL-DEFINED DISORDER
  4. CITALOPRAM HYDROBROMIDE (CITALOPRAM HYDROBROMIDE) [Suspect]
     Indication: ILL-DEFINED DISORDER
  5. CLONAZEPAM [Suspect]
     Indication: ILL-DEFINED DISORDER
  6. TIAGABINE HYDROCHLORIDE (TIAGABINE HYDROCHLORIDE) [Concomitant]
     Indication: ILL-DEFINED DISORDER

REACTIONS (4)
  - DIZZINESS [None]
  - DRUG INTERACTION [None]
  - HYPOGLYCAEMIA [None]
  - VISION BLURRED [None]
